FAERS Safety Report 25476307 (Version 2)
Quarter: 2025Q3

REPORT INFORMATION
  Report Type: Spontaneous
  Country: US (occurrence: US)
  Receive Date: 20250625
  Receipt Date: 20250916
  Transmission Date: 20251020
  Serious: Yes (Life-Threatening, Other)
  Sender: NOVO NORDISK
  Company Number: US-NOVOPROD-1461755

PATIENT
  Age: 45 Year
  Sex: Female

DRUGS (5)
  1. OZEMPIC [Suspect]
     Active Substance: SEMAGLUTIDE
     Indication: Type 2 diabetes mellitus
     Dates: start: 20230428, end: 202305
  2. OZEMPIC [Suspect]
     Active Substance: SEMAGLUTIDE
     Dates: start: 202305, end: 202405
  3. OZEMPIC [Suspect]
     Active Substance: SEMAGLUTIDE
     Dates: start: 202504
  4. OZEMPIC [Suspect]
     Active Substance: SEMAGLUTIDE
     Dosage: 2 MG, QW
     Route: 058
     Dates: start: 202503, end: 202504
  5. OZEMPIC [Suspect]
     Active Substance: SEMAGLUTIDE
     Dates: start: 202406, end: 202503

REACTIONS (20)
  - Suicidal ideation [Not Recovered/Not Resolved]
  - Illness [Unknown]
  - Extrasystoles [Unknown]
  - Brain fog [Unknown]
  - Malnutrition [Unknown]
  - Food aversion [Unknown]
  - Menopause [Unknown]
  - Palpitations [Recovering/Resolving]
  - Cognitive disorder [Not Recovered/Not Resolved]
  - Food aversion [Recovered/Resolved]
  - Muscle atrophy [Not Recovered/Not Resolved]
  - Alopecia [Not Recovered/Not Resolved]
  - Weight increased [Unknown]
  - Blood glucose increased [Unknown]
  - Diabetes mellitus inadequate control [Unknown]
  - Fatigue [Not Recovered/Not Resolved]
  - Weight decreased [Unknown]
  - Decreased appetite [Unknown]
  - Expired product administered [Unknown]
  - Prescription drug used without a prescription [Unknown]

NARRATIVE: CASE EVENT DATE: 20230401
